FAERS Safety Report 19647902 (Version 1)
Quarter: 2021Q3

REPORT INFORMATION
  Report Type: Spontaneous
  Country: BR (occurrence: BR)
  Receive Date: 20210802
  Receipt Date: 20210802
  Transmission Date: 20211014
  Serious: Yes (Death)
  Sender: FDA-Public Use
  Company Number: BR-PFIZER INC-202100922269

PATIENT
  Sex: Female

DRUGS (1)
  1. DIABINESE [Suspect]
     Active Substance: CHLORPROPAMIDE
     Indication: OCULAR VASCULAR DISORDER
     Dosage: UNK
     Dates: start: 2019

REACTIONS (4)
  - Blood glucose decreased [Unknown]
  - Death [Fatal]
  - Pre-existing condition improved [Unknown]
  - Off label use [Unknown]

NARRATIVE: CASE EVENT DATE: 2019
